FAERS Safety Report 20616706 (Version 1)
Quarter: 2022Q1

REPORT INFORMATION
  Report Type: Spontaneous
  Country: US (occurrence: US)
  Receive Date: 20220321
  Receipt Date: 20220321
  Transmission Date: 20220423
  Serious: Yes (Other)
  Sender: FDA-Public Use
  Company Number: US-ALLERGAN-2209067US

PATIENT
  Sex: Female

DRUGS (3)
  1. RESTASIS [Suspect]
     Active Substance: CYCLOSPORINE
     Indication: Product used for unknown indication
     Dosage: UNK
     Dates: start: 20210305
  2. EYSUVIS [Suspect]
     Active Substance: LOTEPREDNOL ETABONATE
     Indication: Dry eye
     Dosage: UNK
     Route: 047
     Dates: start: 20210305, end: 20220225
  3. SYSTANE (HYPROMELLOSE 2910 (4000 MPA.S)) [Suspect]
     Active Substance: HYPROMELLOSE 2910 (4000 MPA.S)
     Indication: Product used for unknown indication

REACTIONS (7)
  - Ulcerative keratitis [Unknown]
  - Visual impairment [Not Recovered/Not Resolved]
  - Corneal defect [Not Recovered/Not Resolved]
  - Acarodermatitis [Unknown]
  - Infestation [Unknown]
  - Inappropriate schedule of product administration [Unknown]
  - Pruritus [Unknown]
